FAERS Safety Report 5552005-5 (Version None)
Quarter: 2007Q4

REPORT INFORMATION
  Report Type: 
  Country: None (occurrence: None)
  Receive Date: 20071210
  Receipt Date: 20071128
  Transmission Date: 20080405
  Serious: Yes (Hospitalization)
  Sender: FDA-Public Use
  Company Number: ADR1562007

PATIENT
  Age: 63 Year
  Sex: Female

DRUGS (6)
  1. RANITIDINE HCL [Suspect]
     Indication: CHEMOTHERAPY
     Dosage: IV
     Route: 042
  2. PACLITAXEL [Concomitant]
  3. CARBOPLATIN [Concomitant]
  4. METHYLPREDNISOLONE [Concomitant]
  5. DEXCHLORPHENIRAMINE [Concomitant]
  6. GRANISETRON [Concomitant]

REACTIONS (3)
  - ANAPHYLACTIC REACTION [None]
  - DRUG HYPERSENSITIVITY [None]
  - LOSS OF CONSCIOUSNESS [None]
